FAERS Safety Report 11090122 (Version 1)
Quarter: 2015Q2

REPORT INFORMATION
  Report Type: Spontaneous
  Country: IT (occurrence: None)
  Receive Date: 20150501
  Receipt Date: 20150501
  Transmission Date: 20150821
  Serious: Yes (Other)
  Sender: FDA-Public Use
  Company Number: 2015JUB00114

PATIENT
  Age: 54 Year
  Sex: Female

DRUGS (1)
  1. PREDNISONE (PREDNISONE) UNKNOWN [Suspect]
     Active Substance: PREDNISONE
     Indication: RASH GENERALISED
     Dosage: 1 MG/KG, 1X/DAY, ORAL
     Route: 048

REACTIONS (6)
  - Condition aggravated [None]
  - Hypoproteinaemia [None]
  - Hepatic function abnormal [None]
  - Neutrophilia [None]
  - Psoriasis [None]
  - Skin hyperpigmentation [None]
